FAERS Safety Report 10579860 (Version 1)
Quarter: 2014Q4

REPORT INFORMATION
  Report Type: Spontaneous
  Country: TN (occurrence: TN)
  Receive Date: 20141112
  Receipt Date: 20141112
  Transmission Date: 20150529
  Serious: Yes (Other)
  Sender: FDA-Public Use
  Company Number: TN-BAYER-2014-166382

PATIENT
  Age: 67 Year
  Sex: Male

DRUGS (1)
  1. SORAFENIB (RAF KINASE INHIBITOR) [Suspect]
     Active Substance: SORAFENIB
     Indication: HEPATOCELLULAR CARCINOMA
     Dosage: 800 MG, QD
     Route: 048

REACTIONS (3)
  - Hemiparesis [Recovered/Resolved]
  - Cerebral ischaemia [None]
  - Diarrhoea [None]

NARRATIVE: CASE EVENT DATE: 20140915
